FAERS Safety Report 19495539 (Version 1)
Quarter: 2021Q3

REPORT INFORMATION
  Report Type: Spontaneous
  Country: GB (occurrence: GB)
  Receive Date: 20210706
  Receipt Date: 20210706
  Transmission Date: 20211014
  Serious: Yes (Other)
  Sender: FDA-Public Use
  Company Number: GB-TEVA-2021-GB-1929162

PATIENT
  Age: 91 Year
  Sex: Male
  Weight: 59 kg

DRUGS (11)
  1. CLOBETASOL PROPIONATE. [Concomitant]
     Active Substance: CLOBETASOL PROPIONATE
     Dosage: VERY POTENT STEROID CREAM ? APPLY SPARINGLY TO ...
     Dates: start: 20210611
  2. LATANOPROST. [Concomitant]
     Active Substance: LATANOPROST
     Dosage: 1 GTT DAILY;
     Dates: start: 20200901
  3. PREDNISOLONE. [Concomitant]
     Active Substance: PREDNISOLONE
     Dosage: REDUCE FROM 30MG (6 TABLETS) TO 0MG (0 TABLETS) BY 5MG (1 TABLET) EACH DAY
     Dates: start: 20210615
  4. FUROSEMIDE. [Concomitant]
     Active Substance: FUROSEMIDE
     Dosage: 2 DOSAGE FORMS DAILY; EACH MORNING AND LUNCH
     Dates: start: 20210316
  5. RAMIPRIL. [Suspect]
     Active Substance: RAMIPRIL
     Dosage: 1.25 MILLIGRAM DAILY;
     Dates: start: 20210316
  6. BISOPROLOL [Concomitant]
     Active Substance: BISOPROLOL
     Dosage: 1 DOSAGE FORMS DAILY;
     Dates: start: 20210316
  7. SENNA [Concomitant]
     Active Substance: SENNA LEAF\SENNOSIDES\SENNOSIDES A AND B
     Dosage: TAKE ONE OR TWO TABLETS ONCE A DAY AT BEDTIME W...
     Dates: start: 20201029
  8. AZOPT [Concomitant]
     Active Substance: BRINZOLAMIDE
     Dosage: 3 GTT DAILY; TO BOTH EYES
     Dates: start: 20200901
  9. FLUCLOXACILLIN [Concomitant]
     Active Substance: FLUCLOXACILLIN
     Indication: CELLULITIS
     Dosage: 4 DOSAGE FORMS DAILY;
     Dates: start: 20210528, end: 20210604
  10. HYDROMOL CREAM [Concomitant]
     Dosage: USE AS DIRECTED
     Dates: start: 20210611
  11. LACTULOSE. [Concomitant]
     Active Substance: LACTULOSE
     Indication: CONSTIPATION
     Dosage: TAKE TWO 5ML SPOONS ONCE OR TWICE A DAY
     Dates: start: 20210601

REACTIONS (2)
  - Pemphigoid [Recovering/Resolving]
  - Blister [Unknown]

NARRATIVE: CASE EVENT DATE: 20210616
